FAERS Safety Report 8005003-6 (Version None)
Quarter: 2011Q4

REPORT INFORMATION
  Report Type: 
  Country: None (occurrence: None)
  Receive Date: 20111223
  Receipt Date: 20111215
  Transmission Date: 20120403
  Serious: Yes (Hospitalization, Other)
  Sender: FDA-Public Use
  Company Number: DE-JNJFOC-20111207250

PATIENT
  Sex: Female

DRUGS (4)
  1. DOXEPIN [Suspect]
     Indication: PRODUCT USED FOR UNKNOWN INDICATION
     Route: 048
     Dates: start: 20111215, end: 20111215
  2. RISPERDAL [Suspect]
     Indication: PRODUCT USED FOR UNKNOWN INDICATION
     Route: 048
     Dates: start: 20111215, end: 20111215
  3. NEURALGEN [Suspect]
     Indication: PRODUCT USED FOR UNKNOWN INDICATION
     Dosage: 7 PACKAGES SUSPECTED
     Route: 048
     Dates: start: 20111215, end: 20111215
  4. TORSEMIDE [Suspect]
     Indication: PRODUCT USED FOR UNKNOWN INDICATION
     Route: 048
     Dates: start: 20111215, end: 20111215

REACTIONS (5)
  - SUICIDE ATTEMPT [None]
  - PSYCHOTIC DISORDER [None]
  - LOSS OF CONSCIOUSNESS [None]
  - AGITATION [None]
  - DISORIENTATION [None]
